FAERS Safety Report 9474728 (Version 2)
Quarter: 2013Q4

REPORT INFORMATION
  Report Type: Spontaneous
  Country: IT (occurrence: IT)
  Receive Date: 20130823
  Receipt Date: 20131010
  Transmission Date: 20140711
  Serious: Yes (Hospitalization)
  Sender: FDA-Public Use
  Company Number: IT-009507513-1308ITA009440

PATIENT
  Age: 66 Year
  Sex: Female
  Weight: 60 kg

DRUGS (3)
  1. INEGY [Suspect]
     Indication: HYPERCHOLESTEROLAEMIA
     Dosage: 10MG+20MG, QD
     Route: 048
     Dates: start: 20130201, end: 20130803
  2. LUCEN (ESOMEPRAZOLE MAGNESIUM) [Concomitant]
     Indication: PROPHYLAXIS AGAINST GASTROINTESTINAL ULCER
     Dosage: UNK
     Route: 048
     Dates: start: 20110101
  3. CARDIOASPIRIN [Concomitant]
     Indication: ARTERIOSCLEROSIS
     Dosage: UNK
     Route: 048
     Dates: start: 20110101

REACTIONS (2)
  - Blood lactate dehydrogenase increased [Recovered/Resolved]
  - Hypertransaminasaemia [Recovered/Resolved]
